FAERS Safety Report 20451791 (Version 7)
Quarter: 2022Q3

REPORT INFORMATION
  Report Type: Report from Study
  Country: FR (occurrence: FR)
  Receive Date: 20220209
  Receipt Date: 20220914
  Transmission Date: 20221027
  Serious: Yes (Life-Threatening, Hospitalization, Other)
  Sender: FDA-Public Use
  Company Number: FR-GILEAD-2022-0568446

PATIENT
  Age: 67 Year
  Sex: Male
  Weight: 87 kg

DRUGS (23)
  1. AXICABTAGENE CILOLEUCEL [Suspect]
     Active Substance: AXICABTAGENE CILOLEUCEL
     Indication: B-cell lymphoma
     Dosage: UNKNOWN CELLS/KG
     Route: 042
     Dates: start: 20220112, end: 20220112
  2. FLUDARABINE [Concomitant]
     Active Substance: FLUDARABINE PHOSPHATE
     Indication: Bone marrow conditioning regimen
     Dosage: 178 MG
     Dates: start: 20220105, end: 20220107
  3. CYCLOPHOSPHAMIDE [Concomitant]
     Active Substance: CYCLOPHOSPHAMIDE
     Indication: Bone marrow conditioning regimen
     Dosage: 2970 MG
     Dates: start: 20220105, end: 20220107
  4. IPRATROPIUM BROMIDE\FENOTEROL HYDROBROMIDE [Concomitant]
     Active Substance: FENOTEROL HYDROBROMIDE\IPRATROPIUM BROMIDE
     Dosage: 50/20 ?G, THREE PUFFS PER DAY
  5. SYMBICORT [Concomitant]
     Active Substance: BUDESONIDE\FORMOTEROL FUMARATE DIHYDRATE
  6. ZOPICLONE [Concomitant]
     Active Substance: ZOPICLONE
  7. PRAZEPAM [Concomitant]
     Active Substance: PRAZEPAM
  8. PREDNISONE [Concomitant]
     Active Substance: PREDNISONE
  9. CANDESARTAN [Concomitant]
     Active Substance: CANDESARTAN
  10. VANCOMYCIN [Concomitant]
     Active Substance: VANCOMYCIN
     Dosage: UNK
     Dates: start: 20220107
  11. PHLOROGLUCINOL [Concomitant]
     Active Substance: PHLOROGLUCINOL
  12. PULMICORT TURBUHALER [Concomitant]
     Active Substance: BUDESONIDE
  13. DEXTRO [Concomitant]
     Dosage: 1.54 GRAM PER LITRE
  14. ENOXAPARIN [Concomitant]
     Active Substance: ENOXAPARIN
  15. ATOVAQUONE [Concomitant]
     Active Substance: ATOVAQUONE
     Dosage: UNK
     Dates: start: 20220106
  16. VALACYCLOVIR HYDROCHLORIDE [Concomitant]
     Active Substance: VALACYCLOVIR HYDROCHLORIDE
  17. ESOMEPRAZOLE SODIUM [Concomitant]
     Active Substance: ESOMEPRAZOLE SODIUM
  18. POTASSIUM CHLORIDE [Concomitant]
     Active Substance: POTASSIUM CHLORIDE
  19. NEBIVOLOL [Concomitant]
     Active Substance: NEBIVOLOL
  20. IMOVANE [Concomitant]
     Active Substance: ZOPICLONE
  21. OXAZEPAM [Concomitant]
     Active Substance: OXAZEPAM
  22. AMITRIPTYLINE HYDROCHLORIDE [Concomitant]
     Active Substance: AMITRIPTYLINE HYDROCHLORIDE
  23. BACTRIM [Concomitant]
     Active Substance: SULFAMETHOXAZOLE\TRIMETHOPRIM
     Dosage: UNK
     Dates: start: 20220105

REACTIONS (5)
  - Chronic obstructive pulmonary disease [Recovered/Resolved]
  - Acute kidney injury [Not Recovered/Not Resolved]
  - Febrile neutropenia [Recovered/Resolved]
  - Cytokine release syndrome [Recovered/Resolved]
  - Immune effector cell-associated neurotoxicity syndrome [Recovered/Resolved with Sequelae]

NARRATIVE: CASE EVENT DATE: 20220112
